FAERS Safety Report 4605848-6 (Version None)
Quarter: 2005Q1

REPORT INFORMATION
  Report Type: 
  Country: None (occurrence: None)
  Receive Date: 20050116
  Receipt Date: 20041116
  Transmission Date: 20050727
  Serious: Yes (Hospitalization)
  Sender: FDA-Public Use
  Company Number: HQWYE493117NOV04

PATIENT
  Sex: Female

DRUGS (2)
  1. EFFEXOR [Suspect]
     Dosage: SEE IMAGE
     Route: 048
  2. TOPROL XL (METROPROLOL SUCCINATE) [Concomitant]

REACTIONS (4)
  - CONDITION AGGRAVATED [None]
  - ELECTROCARDIOGRAM ABNORMAL [None]
  - MYOCARDIAL INFARCTION [None]
  - PALPITATIONS [None]
